FAERS Safety Report 5241577-6 (Version None)
Quarter: 2007Q1

REPORT INFORMATION
  Report Type: 
  Country: None (occurrence: None)
  Receive Date: 20070212
  Receipt Date: 20070212
  Transmission Date: 20070707
  Serious: Yes (Hospitalization)
  Sender: FDA-Public Use
  Company Number: None

PATIENT
  Sex: Female
  Weight: 100 kg

DRUGS (2)
  1. IBUPROFEN [Suspect]
     Indication: PAIN
     Dosage: PO
     Route: 048
  2. NAPROXEN [Suspect]
     Indication: PAIN
     Dosage: PO
     Route: 048

REACTIONS (1)
  - RENAL FAILURE ACUTE [None]
